FAERS Safety Report 14560228 (Version 1)
Quarter: 2018Q1

REPORT INFORMATION
  Report Type: Spontaneous
  Country: US (occurrence: US)
  Receive Date: 20180222
  Receipt Date: 20180222
  Transmission Date: 20180509
  Serious: No
  Sender: FDA-Public Use
  Company Number: US-TEVA-2018-US-854506

PATIENT
  Sex: Female

DRUGS (3)
  1. PROAIR HFA [Suspect]
     Active Substance: ALBUTEROL SULFATE
     Indication: WHEEZING
     Dates: start: 20180124
  2. PROAIR HFA [Suspect]
     Active Substance: ALBUTEROL SULFATE
     Indication: INFLUENZA
     Dates: start: 20180124
  3. PROAIR HFA [Suspect]
     Active Substance: ALBUTEROL SULFATE
     Indication: RESPIRATORY SYMPTOM
     Dosage: ONE PUFF EVERY FOUR HOURS
     Dates: start: 20180124

REACTIONS (4)
  - Panic attack [Unknown]
  - Adverse reaction [Unknown]
  - Urticaria [Unknown]
  - Nervousness [Unknown]

NARRATIVE: CASE EVENT DATE: 20180125
